FAERS Safety Report 7078833-5 (Version None)
Quarter: 2010Q4

REPORT INFORMATION
  Report Type: 
  Country: None (occurrence: None)
  Receive Date: 20101102
  Receipt Date: 20101028
  Transmission Date: 20110411
  Serious: Yes (Other)
  Sender: FDA-Public Use
  Company Number: JP-PFIZER INC-2010138299

PATIENT

DRUGS (3)
  1. SOLU-MEDROL [Suspect]
     Indication: INTERSTITIAL LUNG DISEASE
     Dosage: 1000 MG, UNK
     Route: 042
  2. TAKEPRON [Concomitant]
  3. ETHINYLESTRADIOL [Concomitant]

REACTIONS (1)
  - HEPATIC FUNCTION ABNORMAL [None]
